FAERS Safety Report 8535597 (Version 2)
Quarter: 2012Q4

REPORT INFORMATION
  Report Type: 
  Country: US (occurrence: US)
  Receive Date: 20120430
  Receipt Date: 20121005
  Transmission Date: 20130627
  Serious: Yes (Other)
  Sender: FDA-Public Use
  Company Number: US-BAYER-2012-040190

PATIENT
  Age: 23 Year
  Sex: Female
  Weight: 95.24 kg

DRUGS (16)
  1. YAZ [Suspect]
     Indication: ACNE
     Dosage: UNK
     Dates: start: 20090105, end: 20100214
  2. YAZ [Suspect]
     Indication: CONTRACEPTION
  3. YAZ [Suspect]
     Indication: DYSMENORRHOEA
  4. AMITRIPTYLINE [Concomitant]
     Indication: BIPOLAR DISORDER
     Dosage: UNK
     Dates: start: 20080218, end: 2010
  5. CELEXA [Concomitant]
     Dosage: 40 mg, DAILY
     Route: 048
     Dates: start: 20100106
  6. GEODON [Concomitant]
     Dosage: 40 mg, BID
     Route: 048
     Dates: start: 20100106
  7. PONSTEL [Concomitant]
     Dosage: 500 mg [times] 1 followed by 250 mg every 6 hours starting with the onset of bleeding
     Route: 048
     Dates: start: 20100106
  8. ABILIFY [Concomitant]
     Dosage: 5 mg, UNK
     Dates: start: 20100114
  9. ZOLOFT [Concomitant]
     Indication: BIPOLAR DISORDER
     Dosage: 50 mg, UNK
     Dates: start: 20090619, end: 20100214
  10. TUSSIONEX [Concomitant]
     Dosage: 1 teaspoon every 12 hours as needed
     Route: 048
     Dates: start: 20100309
  11. PREDNISONE [Concomitant]
     Dosage: 20 mg 3 tablets daily [4 day supply dispensed]
     Route: 048
     Dates: start: 20100309
  12. BENZONATATE [Concomitant]
     Indication: COUGH
     Dosage: 1 capsule every 6 to 8 hours as needed
     Route: 048
     Dates: start: 20100310
  13. PROVENTIL [Concomitant]
     Dosage: UNK UNK, PRN
     Dates: start: 20100402
  14. AMBIEN [Concomitant]
     Indication: BIPOLAR DISORDER
     Dosage: 10 mg, UNK
     Dates: start: 20071219, end: 20100515
  15. XANAX [Concomitant]
     Indication: BIPOLAR DISORDER
     Dosage: 2 mg, UNK
     Dates: start: 20100114, end: 20100515
  16. LAMICTAL [Concomitant]
     Indication: BIPOLAR DISORDER
     Dosage: 100 mg, UNK
     Dates: start: 20090810, end: 20100711

REACTIONS (6)
  - Biliary dyskinesia [None]
  - Cholecystitis [None]
  - Injury [None]
  - Pain [None]
  - Fear [None]
  - Anxiety [None]
